FAERS Safety Report 7592945-9 (Version None)
Quarter: 2011Q3

REPORT INFORMATION
  Report Type: 
  Country: None (occurrence: None)
  Receive Date: 20110706
  Receipt Date: 20110615
  Transmission Date: 20111222
  Serious: Yes (Death, Hospitalization)
  Sender: FDA-Public Use
  Company Number: US-GLAXOSMITHKLINE-A0865097A

PATIENT
  Age: 55 Year
  Sex: Female
  Weight: 91.8 kg

DRUGS (10)
  1. LUMIGAN [Concomitant]
  2. NOVOLIN R [Concomitant]
  3. TENORMIN [Concomitant]
  4. VICODIN [Concomitant]
  5. AVANDIA [Suspect]
     Indication: TYPE 2 DIABETES MELLITUS
     Dates: start: 20011101, end: 20070601
  6. AVANDAMET [Suspect]
     Indication: TYPE 2 DIABETES MELLITUS
     Dates: start: 20021201, end: 20060101
  7. ZESTRIL [Concomitant]
  8. VALIUM [Concomitant]
  9. HUMULIN N [Concomitant]
  10. LIPITOR [Concomitant]

REACTIONS (5)
  - CEREBROVASCULAR ACCIDENT [None]
  - CARDIAC FAILURE CONGESTIVE [None]
  - HYPERTENSIVE ENCEPHALOPATHY [None]
  - MACULAR OEDEMA [None]
  - DEATH [None]
